FAERS Safety Report 16389128 (Version 2)
Quarter: 2019Q2

REPORT INFORMATION
  Report Type: Spontaneous
  Country: US (occurrence: US)
  Receive Date: 20190604
  Receipt Date: 20190606
  Transmission Date: 20190711
  Serious: Yes (Hospitalization)
  Sender: FDA-Public Use
  Company Number: US-PFIZER INC-2019231706

PATIENT
  Age: 83 Year
  Sex: Male

DRUGS (1)
  1. MEROPENEM. [Suspect]
     Active Substance: MEROPENEM
     Dosage: UNK
     Dates: end: 20190524

REACTIONS (8)
  - Tremor [Recovering/Resolving]
  - Oxygen saturation decreased [Unknown]
  - Muscle twitching [Recovering/Resolving]
  - Soliloquy [Recovering/Resolving]
  - Memory impairment [Recovering/Resolving]
  - Hallucination [Recovering/Resolving]
  - Dyskinesia [Recovering/Resolving]
  - Urinary tract infection [Unknown]
